FAERS Safety Report 18244574 (Version 2)
Quarter: 2020Q3

REPORT INFORMATION
  Report Type: Spontaneous
  Country: CA (occurrence: CA)
  Receive Date: 20200909
  Receipt Date: 20200914
  Transmission Date: 20201103
  Serious: Yes (Other)
  Sender: FDA-Public Use
  Company Number: CA-PFIZER INC-2020329816

PATIENT
  Age: 38 Year
  Sex: Female

DRUGS (10)
  1. HUMIRA [Concomitant]
     Active Substance: ADALIMUMAB
     Indication: ARTHRITIS
     Dosage: 40 MG EVERY 2 WEEKS
     Route: 065
     Dates: start: 2014
  2. FOLIC ACID. [Concomitant]
     Active Substance: FOLIC ACID
     Dosage: 5 MG, WEEKLY
  3. ACTONEL [Concomitant]
     Active Substance: RISEDRONATE SODIUM
     Indication: PROPHYLAXIS
     Dosage: 35 MG, WEEKLY
  4. VITAMIN D3 [Concomitant]
     Active Substance: CHOLECALCIFEROL
  5. PLAQUENIL S [Concomitant]
     Active Substance: HYDROXYCHLOROQUINE SULFATE
  6. METHOTREXATE SODIUM. [Suspect]
     Active Substance: METHOTREXATE SODIUM
     Dosage: UNK
     Route: 065
     Dates: start: 199710
  7. OLMESARTAN [Concomitant]
     Active Substance: OLMESARTAN
     Indication: HYPERTENSION
     Dosage: UNK
  8. METHOTREXATE SODIUM. [Suspect]
     Active Substance: METHOTREXATE SODIUM
     Dosage: 7.5 MG EVERY 2 WEEKS
     Route: 065
     Dates: start: 2014
  9. METHOTREXATE SODIUM. [Suspect]
     Active Substance: METHOTREXATE SODIUM
     Dosage: 7.5 MG, 2X/WEEK
     Dates: start: 2014
  10. HUMIRA [Concomitant]
     Active Substance: ADALIMUMAB
     Dosage: 40 MG EVERY 2 WEEKS
     Route: 058
     Dates: start: 2020, end: 2020

REACTIONS (10)
  - Anxiety [Unknown]
  - Joint effusion [Unknown]
  - Uterine polyp [Unknown]
  - Therapeutic product effect incomplete [Unknown]
  - Depression [Unknown]
  - Red blood cell sedimentation rate increased [Recovering/Resolving]
  - Nephrolithiasis [Unknown]
  - Rheumatoid arthritis [Unknown]
  - Synovitis [Unknown]
  - Haematuria [Unknown]

NARRATIVE: CASE EVENT DATE: 200008
